FAERS Safety Report 7994302-X (Version None)
Quarter: 2011Q4

REPORT INFORMATION
  Report Type: 
  Country: None (occurrence: None)
  Receive Date: 20111220
  Receipt Date: 20111214
  Transmission Date: 20120403
  Serious: Yes (Death, Other)
  Sender: FDA-Public Use
  Company Number: DE-BRISTOL-MYERS SQUIBB COMPANY-14708960

PATIENT
  Age: 31 Year
  Sex: Female

DRUGS (2)
  1. MORPHINE [Concomitant]
     Dosage: MORPHINE-PLASTERS
  2. ABILIFY [Suspect]
     Indication: SCHIZOPHRENIA
     Dates: start: 20080901, end: 20090601

REACTIONS (2)
  - SUDDEN CARDIAC DEATH [None]
  - FATIGUE [None]
